FAERS Safety Report 11431676 (Version 2)
Quarter: 2015Q3

REPORT INFORMATION
  Report Type: Spontaneous
  Country: US (occurrence: US)
  Receive Date: 20150828
  Receipt Date: 20150914
  Transmission Date: 20151125
  Serious: Yes (Other)
  Sender: FDA-Public Use
  Company Number: US-009507513-1508USA009436

PATIENT
  Sex: Male

DRUGS (5)
  1. PRINIVIL [Suspect]
     Active Substance: LISINOPRIL
     Indication: HYPERTENSION
     Dosage: 20 MG DAILY
     Route: 048
  2. MELOXICAM. [Interacting]
     Active Substance: MELOXICAM
     Dosage: 15 MG DAILY
  3. ZOCOR [Concomitant]
     Active Substance: SIMVASTATIN
  4. PRINIVIL [Interacting]
     Active Substance: LISINOPRIL
     Dosage: 10 MG, QD
     Route: 048
  5. MELOXICAM. [Interacting]
     Active Substance: MELOXICAM
     Indication: ARTHRALGIA
     Dosage: AS NEEDED

REACTIONS (3)
  - Drug interaction [Unknown]
  - Nephropathy [Not Recovered/Not Resolved]
  - Renal failure [Not Recovered/Not Resolved]

NARRATIVE: CASE EVENT DATE: 2014
